FAERS Safety Report 4526738-3 (Version None)
Quarter: 2004Q4

REPORT INFORMATION
  Report Type: 
  Country: None (occurrence: None)
  Receive Date: 20041213
  Receipt Date: 20041201
  Transmission Date: 20050328
  Serious: Yes (Other)
  Sender: FDA-Public Use
  Company Number: 2004100533

PATIENT

DRUGS (4)
  1. VIAGRA [Suspect]
     Indication: ILL-DEFINED DISORDER
  2. LISINOPRIL [Suspect]
     Indication: ILL-DEFINED DISORDER
  3. HYDROCHLOROTHIAZIDE [Suspect]
     Indication: ILL-DEFINED DISORDER
  4. ACETYLSALICYLIC ACIDI (ACETYSALICYLIC ACID) [Suspect]
     Indication: ILL-DEFINED DISORDER

REACTIONS (1)
  - GLOBAL AMNESIA [None]
